FAERS Safety Report 10290523 (Version 1)
Quarter: 2014Q3

REPORT INFORMATION
  Report Type: Spontaneous
  Country: US (occurrence: US)
  Receive Date: 20140710
  Receipt Date: 20140710
  Transmission Date: 20150326
  Serious: Yes (Other)
  Sender: FDA-Public Use
  Company Number: US-PFIZER INC-2014188449

PATIENT
  Age: 16 Year
  Sex: Male
  Weight: 95.24 kg

DRUGS (8)
  1. VITAMIN C [Concomitant]
     Active Substance: ASCORBIC ACID
     Dosage: UNK
  2. CALCIUM [Concomitant]
     Active Substance: CALCIUM
     Dosage: UNK
  3. FISH OIL [Concomitant]
     Active Substance: FISH OIL
     Dosage: UNK
  4. SUPER B ENERGY COMPLEX [Concomitant]
     Dosage: UNK
  5. CINNAMON. [Concomitant]
     Active Substance: CINNAMON
     Dosage: 1000 MG, UNK
  6. GINKGO BILOBA [Concomitant]
     Active Substance: GINKGO
     Dosage: UNK
  7. ST JOHN WORT [Concomitant]
     Dosage: UNK
  8. DILANTIN [Suspect]
     Active Substance: PHENYTOIN
     Indication: ATTENTION DEFICIT/HYPERACTIVITY DISORDER
     Dosage: UNK

REACTIONS (2)
  - Deafness [Not Recovered/Not Resolved]
  - Tinnitus [Not Recovered/Not Resolved]
